FAERS Safety Report 12827040 (Version 1)
Quarter: 2016Q4

REPORT INFORMATION
  Report Type: Spontaneous
  Country: US (occurrence: US)
  Receive Date: 20161006
  Receipt Date: 20161006
  Transmission Date: 20170207
  Serious: Yes (Other)
  Sender: FDA-Public Use
  Company Number: US-ASTRAZENECA-2016SF04542

PATIENT
  Age: 75 Year
  Sex: Male
  Weight: 70.3 kg

DRUGS (18)
  1. TUDORZA PRESSAIR [Suspect]
     Active Substance: ACLIDINIUM BROMIDE
     Indication: CHRONIC OBSTRUCTIVE PULMONARY DISEASE
     Dosage: 400 MCG ONE INHALATION TWICE A DAY
     Route: 055
     Dates: start: 201409
  2. TUDORZA PRESSAIR [Suspect]
     Active Substance: ACLIDINIUM BROMIDE
     Indication: CARDIAC FAILURE CONGESTIVE
     Dosage: 400 MCG ONE INHALATION TWICE A DAY
     Route: 055
     Dates: start: 201409
  3. COUMADIN [Suspect]
     Active Substance: WARFARIN SODIUM
     Route: 065
  4. ALLOPURINOL. [Concomitant]
     Active Substance: ALLOPURINOL
     Indication: GOUT
  5. AMLODIPINE [Concomitant]
     Active Substance: AMLODIPINE BESYLATE
     Indication: BLOOD PRESSURE ABNORMAL
     Dosage: 2.5 MG IN THE MORNING AND EVENING
  6. TUDORZA PRESSAIR [Suspect]
     Active Substance: ACLIDINIUM BROMIDE
     Indication: PULMONARY OEDEMA
     Dosage: 400 MCG ONE INHALATION TWICE A DAY
     Route: 055
     Dates: start: 201409
  7. ARMOUR THYROID [Concomitant]
     Active Substance: THYROID, PORCINE
     Indication: THYROID DISORDER
     Dates: start: 2001
  8. BUMEX [Concomitant]
     Active Substance: BUMETANIDE
     Indication: DIURETIC THERAPY
     Dosage: 2 MG IF HIS WEIGHT IS 155 OR GREATER
  9. RESTASIS [Concomitant]
     Active Substance: CYCLOSPORINE
     Dosage: 0.5 OPHTHALMIC SOLUTION ONE DROP IN EACH EYE IN THE MORNING
     Route: 047
  10. CRESTOR [Suspect]
     Active Substance: ROSUVASTATIN CALCIUM
     Indication: BLOOD CHOLESTEROL INCREASED
     Route: 048
     Dates: start: 2003
  11. KEPPRA [Concomitant]
     Active Substance: LEVETIRACETAM
     Indication: SEIZURE
     Dosage: 500 MG EVERY 12 HOURS
  12. ASPIRIN. [Concomitant]
     Active Substance: ASPIRIN
  13. PROPECIA [Concomitant]
     Active Substance: FINASTERIDE
  14. LOSARTAN. [Concomitant]
     Active Substance: LOSARTAN
     Indication: BLOOD PRESSURE ABNORMAL
  15. ESCITALOPRAM [Concomitant]
     Active Substance: ESCITALOPRAM OXALATE
  16. VITAMIN B COMPLEX [Concomitant]
     Active Substance: CYANOCOBALAMIN\DEXPANTHENOL\NIACINAMIDE\PYRIDOXINE HYDROCHLORIDE\RIBOFLAVIN 5^-PHOSPHATE SODIUM\THIAMINE HYDROCHLORIDE\VITAMIN B COMPLEX
     Dosage: DAILY
  17. TEMAZEPAM. [Concomitant]
     Active Substance: TEMAZEPAM
     Indication: INSOMNIA
  18. CENTRIUM SILVER NITRO [Concomitant]
     Dosage: AS NEEDED

REACTIONS (14)
  - Cardiac failure congestive [Unknown]
  - Ocular hyperaemia [Unknown]
  - Pulmonary oedema [Unknown]
  - Chronic obstructive pulmonary disease [Unknown]
  - Gout [Unknown]
  - Insomnia [Unknown]
  - Seizure [Unknown]
  - Asthenia [Unknown]
  - Dizziness [Unknown]
  - Urine flow decreased [Unknown]
  - Haemorrhagic anaemia [Unknown]
  - Vision blurred [Unknown]
  - Ocular discomfort [Unknown]
  - Hypertension [Unknown]

NARRATIVE: CASE EVENT DATE: 2007
